FAERS Safety Report 18072462 (Version 1)
Quarter: 2020Q3

REPORT INFORMATION
  Report Type: Spontaneous
  Country: US (occurrence: US)
  Receive Date: 20200725
  Receipt Date: 20200725
  Transmission Date: 20201103
  Serious: No
  Sender: FDA-Public Use
  Company Number: None

PATIENT
  Age: 56 Year
  Sex: Female

DRUGS (1)
  1. FORTEO [Suspect]
     Active Substance: TERIPARATIDE
     Indication: HYPOPARATHYROIDISM
     Route: 058
     Dates: start: 20200603, end: 202007

REACTIONS (2)
  - Heart rate increased [None]
  - Headache [None]

NARRATIVE: CASE EVENT DATE: 202006
